FAERS Safety Report 5042343-7 (Version None)
Quarter: 2006Q3

REPORT INFORMATION
  Report Type: 
  Country: None (occurrence: None)
  Receive Date: 20060705
  Receipt Date: 20060627
  Transmission Date: 20061208
  Serious: Yes (Disabling, Other)
  Sender: FDA-Public Use
  Company Number: FR-JNJFOC-20060605511

PATIENT
  Age: 63 Year
  Sex: Female

DRUGS (2)
  1. TAVANIC [Suspect]
     Indication: SINUSITIS
     Route: 048
     Dates: start: 20060203
  2. SOLUPRED [Suspect]
     Indication: SINUSITIS
     Route: 048
     Dates: start: 20060204

REACTIONS (10)
  - ARTHRALGIA [None]
  - DYSPNOEA [None]
  - GASTROINTESTINAL DISORDER [None]
  - INSOMNIA [None]
  - LYME DISEASE [None]
  - MICTURITION DISORDER [None]
  - MUSCULAR WEAKNESS [None]
  - TENDON DISORDER [None]
  - TENDONITIS [None]
  - TREMOR [None]
